FAERS Safety Report 7615836-3 (Version None)
Quarter: 2011Q3

REPORT INFORMATION
  Report Type: 
  Country: None (occurrence: None)
  Receive Date: 20110711
  Receipt Date: 20110624
  Transmission Date: 20111222
  Serious: Yes (Hospitalization)
  Sender: FDA-Public Use
  Company Number: 2011MA008026

PATIENT
  Age: 75 Year
  Sex: Male

DRUGS (3)
  1. METFORMIN HYDROCHLORIDE [Suspect]
     Indication: TYPE 2 DIABETES MELLITUS
     Dosage: 2.6 GM, QD;
  2. TELMISARTAN [Concomitant]
  3. CHLORPROPAMIDE [Concomitant]

REACTIONS (13)
  - SINUS TACHYCARDIA [None]
  - DEHYDRATION [None]
  - OLIGURIA [None]
  - ANAEMIA [None]
  - ANION GAP INCREASED [None]
  - LACTIC ACIDOSIS [None]
  - DIARRHOEA [None]
  - AZOTAEMIA [None]
  - BUNDLE BRANCH BLOCK RIGHT [None]
  - DISTURBANCE IN ATTENTION [None]
  - HYPERKALAEMIA [None]
  - HYPERLACTACIDAEMIA [None]
  - DYSPNOEA [None]
